FAERS Safety Report 7399077-3 (Version None)
Quarter: 2011Q1

REPORT INFORMATION
  Report Type: 
  Country: None (occurrence: None)
  Receive Date: 20110301
  Receipt Date: 20100211
  Transmission Date: 20110831
  Serious: Yes (Hospitalization)
  Sender: FDA-Public Use
  Company Number: RB-02446-2010

PATIENT
  Sex: Male

DRUGS (4)
  1. SUBOXONE [Suspect]
     Indication: DRUG DEPENDENCE
     Dosage: (16 MG TRANSPLACENTAL), (8 MG BID TRANSMAMMARY)
     Route: 064
     Dates: end: 20090530
  2. SUBOXONE [Suspect]
     Indication: DRUG DEPENDENCE
     Dosage: (16 MG TRANSPLACENTAL), (8 MG BID TRANSMAMMARY)
     Route: 064
     Dates: start: 20100101
  3. SUBUTEX [Suspect]
     Indication: DRUG DEPENDENCE
     Dosage: (12 MG TRANSPLACENTAL), (12 MG TRANSMAMMARY)
     Route: 064
     Dates: start: 20090101, end: 20100101
  4. SUBUTEX [Suspect]
     Indication: DRUG DEPENDENCE
     Dosage: (12 MG TRANSPLACENTAL), (12 MG TRANSMAMMARY)
     Route: 064
     Dates: start: 20100101, end: 20100101

REACTIONS (1)
  - DRUG WITHDRAWAL SYNDROME NEONATAL [None]
